FAERS Safety Report 7627276-1 (Version None)
Quarter: 2011Q3

REPORT INFORMATION
  Report Type: 
  Country: None (occurrence: None)
  Receive Date: 20110721
  Receipt Date: 20110718
  Transmission Date: 20111222
  Serious: Yes (Death, Other)
  Sender: FDA-Public Use
  Company Number: PHHY2011CA49416

PATIENT
  Sex: Female

DRUGS (1)
  1. SANDOSTATIN LAR [Suspect]
     Indication: CARCINOID TUMOUR
     Dosage: 20 MG, EVERY 4 WEEKS
     Route: 030
     Dates: start: 20110525

REACTIONS (6)
  - MUSCULAR WEAKNESS [None]
  - DYSSTASIA [None]
  - DEATH [None]
  - JOINT SWELLING [None]
  - OEDEMA PERIPHERAL [None]
  - FALL [None]
